FAERS Safety Report 6785727-9 (Version None)
Quarter: 2010Q2

REPORT INFORMATION
  Report Type: 
  Country: None (occurrence: None)
  Receive Date: 20100623
  Receipt Date: 20100617
  Transmission Date: 20101027
  Serious: Yes (Death, Other)
  Sender: FDA-Public Use
  Company Number: PHHY2010JP40520

PATIENT
  Age: 16 Year
  Sex: Female

DRUGS (3)
  1. IMATINIB [Suspect]
     Dosage: 300 MG, UNK
  2. CYCLOPHOSPHAMIDE [Concomitant]
     Dosage: 6 G, UNK
  3. RADIATION TREATMENT [Concomitant]
     Dosage: 14.4 GY, UNK

REACTIONS (3)
  - CHROMOSOME ANALYSIS ABNORMAL [None]
  - GRAFT VERSUS HOST DISEASE [None]
  - LEUKAEMIA RECURRENT [None]
